FAERS Safety Report 5576418-0 (Version None)
Quarter: 2007Q4

REPORT INFORMATION
  Report Type: 
  Country: None (occurrence: None)
  Receive Date: 20071228
  Receipt Date: 20071221
  Transmission Date: 20080405
  Serious: Yes (Disabling, Other)
  Sender: FDA-Public Use
  Company Number: AT-BRISTOL-MYERS SQUIBB COMPANY-14016372

PATIENT
  Age: 63 Year
  Sex: Male
  Weight: 71 kg

DRUGS (4)
  1. CETUXIMAB [Suspect]
     Indication: COLORECTAL CANCER METASTATIC
     Dosage: FIRST INFUSION ON 23-OCT-2007.
     Route: 041
     Dates: start: 20071023
  2. OXALIPLATIN [Suspect]
     Indication: COLORECTAL CANCER METASTATIC
     Dosage: FIRST INFUSION ON 23-OCT-2007.
     Route: 042
     Dates: start: 20071023
  3. FLUOROURACIL [Suspect]
     Indication: COLORECTAL CANCER METASTATIC
     Dosage: FIRST INFUSION ON 23-OCT-2007.
     Route: 042
     Dates: start: 20071023
  4. FOLINIC ACID [Suspect]
     Indication: COLORECTAL CANCER METASTATIC
     Dosage: FIRST INFUSION ON 23-OCT-2007.
     Route: 042
     Dates: start: 20071023

REACTIONS (5)
  - COUGH [None]
  - DEHYDRATION [None]
  - DYSPHAGIA [None]
  - FATIGUE [None]
  - WEIGHT DECREASED [None]
